FAERS Safety Report 10380059 (Version 2)
Quarter: 2014Q4

REPORT INFORMATION
  Report Type: Spontaneous
  Country: US (occurrence: US)
  Receive Date: 20140813
  Receipt Date: 20141023
  Transmission Date: 20150528
  Serious: Yes (Other)
  Sender: FDA-Public Use
  Company Number: US-BIOGENIDEC-2014BI079724

PATIENT
  Sex: Female

DRUGS (1)
  1. AVONEX [Suspect]
     Active Substance: INTERFERON BETA-1A
     Indication: MULTIPLE SCLEROSIS
     Route: 030

REACTIONS (6)
  - Gastrointestinal disorder [Unknown]
  - Blister [Unknown]
  - Gastric bypass [Unknown]
  - Liver function test abnormal [Unknown]
  - Alopecia [Unknown]
  - Bladder disorder [Unknown]

NARRATIVE: CASE EVENT DATE: 2008
